FAERS Safety Report 6324558-0 (Version None)
Quarter: 2009Q3

REPORT INFORMATION
  Report Type: 
  Country: None (occurrence: None)
  Receive Date: 20090824
  Receipt Date: 20090428
  Transmission Date: 20100115
  Serious: No
  Sender: FDA-Public Use
  Company Number: US-ABBOTT-09P-163-0570385-00

PATIENT
  Sex: Male

DRUGS (6)
  1. NIASPAN [Suspect]
     Indication: BLOOD TRIGLYCERIDES INCREASED
     Dosage: 2 - 500 MILLIGRAMS AT BEDTIME
     Route: 048
     Dates: start: 20090401
  2. NIASPAN [Suspect]
     Indication: HIGH DENSITY LIPOPROTEIN DECREASED
  3. TRILIPIX [Concomitant]
     Indication: DRUG USE FOR UNKNOWN INDICATION
  4. CARVEDILOL [Concomitant]
     Indication: DRUG USE FOR UNKNOWN INDICATION
  5. JUNIMET [Concomitant]
     Indication: DRUG USE FOR UNKNOWN INDICATION
     Dosage: FORM: 50/500 MILLIGRAMS
     Route: 048
  6. M.V.I. [Concomitant]
     Indication: DRUG USE FOR UNKNOWN INDICATION

REACTIONS (2)
  - FEELING HOT [None]
  - PARAESTHESIA [None]
